FAERS Safety Report 19759175 (Version 1)
Quarter: 2021Q3

REPORT INFORMATION
  Report Type: Spontaneous
  Country: PT (occurrence: PT)
  Receive Date: 20210827
  Receipt Date: 20210827
  Transmission Date: 20211014
  Serious: Yes (Hospitalization, Other)
  Sender: FDA-Public Use
  Company Number: PT-MYLANLABS-2021M1055599

PATIENT
  Age: 33 Year
  Sex: Female

DRUGS (3)
  1. IBUPROFEN. [Suspect]
     Active Substance: IBUPROFEN
     Indication: MYALGIA
     Dosage: 600 MILLIGRAM
     Route: 048
  2. PARACETAMOL [Concomitant]
     Active Substance: ACETAMINOPHEN
     Indication: MYALGIA
     Dosage: UNK
  3. METAMIZOLE [Concomitant]
     Active Substance: METAMIZOLE
     Indication: MYALGIA
     Dosage: 575 MG, 3X/DAY
     Route: 048

REACTIONS (5)
  - Myelosuppression [Recovered/Resolved]
  - Pancytopenia [Recovered/Resolved]
  - Renal tubular necrosis [Recovered/Resolved]
  - Thrombotic microangiopathy [Unknown]
  - Myalgia [Unknown]

NARRATIVE: CASE EVENT DATE: 2021
